FAERS Safety Report 25450125 (Version 1)
Quarter: 2025Q2

REPORT INFORMATION
  Report Type: Report from Study
  Country: US (occurrence: US)
  Receive Date: 20250618
  Receipt Date: 20250618
  Transmission Date: 20250716
  Serious: Yes (Other)
  Sender: ROCHE
  Company Number: US-ROCHE-10000309857

PATIENT

DRUGS (6)
  1. ATEZOLIZUMAB [Suspect]
     Active Substance: ATEZOLIZUMAB
     Indication: Dedifferentiated liposarcoma
     Route: 065
  2. NIVOLUMAB [Suspect]
     Active Substance: NIVOLUMAB
     Indication: Dedifferentiated liposarcoma
     Route: 065
  3. PEMBROLIZUMAB [Suspect]
     Active Substance: PEMBROLIZUMAB
     Indication: Dedifferentiated liposarcoma
     Route: 065
  4. IPILIMUMAB [Suspect]
     Active Substance: IPILIMUMAB
     Indication: Dedifferentiated liposarcoma
     Route: 065
  5. DURVALUMAB [Suspect]
     Active Substance: DURVALUMAB
     Indication: Dedifferentiated liposarcoma
     Route: 065
  6. TREMELIMUMAB [Suspect]
     Active Substance: TREMELIMUMAB
     Indication: Dedifferentiated liposarcoma
     Route: 065

REACTIONS (30)
  - Thrombocytopenia [Unknown]
  - Fatigue [Unknown]
  - Constipation [Unknown]
  - Rash [Unknown]
  - Pruritus [Unknown]
  - Oedema peripheral [Unknown]
  - Diarrhoea [Unknown]
  - Hyponatraemia [Unknown]
  - Colitis [Unknown]
  - Herpes simplex [Unknown]
  - Autoimmune hepatitis [Unknown]
  - Leukocytosis [Unknown]
  - Pyrexia [Unknown]
  - Chills [Unknown]
  - Dry mouth [Unknown]
  - Anaemia [Unknown]
  - Nausea [Unknown]
  - Cough [Unknown]
  - Vomiting [Unknown]
  - Hypertransaminasaemia [Unknown]
  - Immune-mediated nephritis [Unknown]
  - Night sweats [Unknown]
  - Hypoalbuminaemia [Unknown]
  - Hypothyroidism [Unknown]
  - Hyperthyroidism [Unknown]
  - Oral dysaesthesia [Unknown]
  - Salivary hypersecretion [Unknown]
  - Taste disorder [Unknown]
  - Dyspnoea [Unknown]
  - Hyperglycaemia [Unknown]
